FAERS Safety Report 7720794-7 (Version None)
Quarter: 2011Q3

REPORT INFORMATION
  Report Type: 
  Country: None (occurrence: None)
  Receive Date: 20110831
  Receipt Date: 20110824
  Transmission Date: 20111222
  Serious: Yes (Hospitalization)
  Sender: FDA-Public Use
  Company Number: US-JNJFOC-20110611914

PATIENT
  Sex: Male
  Weight: 37.2 kg

DRUGS (14)
  1. REMICADE [Suspect]
     Route: 042
     Dates: start: 20100823
  2. REMICADE [Suspect]
     Route: 042
     Dates: start: 20110707
  3. ANTIBIOTICS [Concomitant]
     Indication: INFLAMMATORY BOWEL DISEASE
  4. PRILOSEC [Concomitant]
  5. ALBUTEROL SULFATE AUTOHALER [Concomitant]
  6. MESALAMINE [Concomitant]
     Indication: INFLAMMATORY BOWEL DISEASE
     Route: 048
  7. REMICADE [Suspect]
     Route: 042
     Dates: start: 20110516
  8. ATIVAN [Concomitant]
  9. REMICADE [Suspect]
     Route: 042
     Dates: start: 20110528
  10. CALCIUM AND VITAMIN D [Concomitant]
  11. REMICADE [Suspect]
     Indication: CROHN'S DISEASE
     Route: 042
  12. PREDNISONE [Concomitant]
  13. OXYCODONE HCL [Concomitant]
  14. ZOFRAN [Concomitant]

REACTIONS (2)
  - CROHN'S DISEASE [None]
  - SMALL INTESTINAL OBSTRUCTION [None]
